FAERS Safety Report 23402301 (Version 2)
Quarter: 2024Q1

REPORT INFORMATION
  Report Type: Spontaneous
  Country: DE (occurrence: DE)
  Receive Date: 20240115
  Receipt Date: 20240212
  Transmission Date: 20240410
  Serious: Yes (Death, Life-Threatening, Hospitalization, Disabling, Other)
  Sender: FDA-Public Use
  Company Number: DE-BRISTOL-MYERS SQUIBB COMPANY-BMS-2018-093229

PATIENT
  Age: 71 Year
  Sex: Male

DRUGS (28)
  1. HEPARIN [Suspect]
     Active Substance: HEPARIN SODIUM
     Indication: Product used for unknown indication
     Dosage: UNK
     Route: 065
  2. IPILIMUMAB [Suspect]
     Active Substance: IPILIMUMAB
     Dosage: 1 MG/KG
     Route: 065
     Dates: start: 20190103, end: 20190204
  3. IPILIMUMAB [Suspect]
     Active Substance: IPILIMUMAB
     Dosage: 1 MG/KG
     Route: 065
     Dates: start: 20190103, end: 20190204
  4. IPILIMUMAB [Suspect]
     Active Substance: IPILIMUMAB
     Indication: Malignant melanoma
     Dosage: 306 MG
     Route: 065
     Dates: start: 20180413
  5. IPILIMUMAB [Suspect]
     Active Substance: IPILIMUMAB
     Dosage: 309 MG, Q3W
     Route: 065
     Dates: start: 20180413, end: 20180504
  6. IPILIMUMAB [Suspect]
     Active Substance: IPILIMUMAB
     Dosage: 309 MG, Q3W
     Route: 065
     Dates: start: 20180504
  7. NIVOLUMAB [Suspect]
     Active Substance: NIVOLUMAB
     Dosage: 103 MG
     Route: 042
     Dates: start: 20180413, end: 20180504
  8. NIVOLUMAB [Suspect]
     Active Substance: NIVOLUMAB
     Indication: Malignant melanoma
     Dosage: 102 MG
     Route: 065
     Dates: start: 20180413
  9. NIVOLUMAB [Suspect]
     Active Substance: NIVOLUMAB
     Dosage: 103 MG, Q3W
     Route: 042
     Dates: start: 20180413, end: 20180504
  10. NIVOLUMAB [Suspect]
     Active Substance: NIVOLUMAB
     Dosage: 103 MG, Q3W
     Route: 065
     Dates: start: 20180504
  11. NIVOLUMAB [Suspect]
     Active Substance: NIVOLUMAB
     Dosage: 3 MG/KG
     Route: 042
     Dates: start: 20190103, end: 20190204
  12. AMPICILLIN SODIUM [Concomitant]
     Active Substance: AMPICILLIN SODIUM
     Dosage: 3000 MG
     Route: 042
     Dates: start: 20180520
  13. AMPICILLIN SODIUM [Concomitant]
     Active Substance: AMPICILLIN SODIUM
     Indication: Product used for unknown indication
     Dosage: 300 MG
     Route: 065
     Dates: start: 20180520
  14. CIPROFLOXACIN HYDROCHLORIDE [Concomitant]
     Active Substance: CIPROFLOXACIN HYDROCHLORIDE
     Dosage: UNK (UNK)
     Route: 065
  15. CIPROFLOXACIN HYDROCHLORIDE [Concomitant]
     Active Substance: CIPROFLOXACIN HYDROCHLORIDE
     Indication: Product used for unknown indication
     Dosage: 3000 MG
     Route: 042
     Dates: start: 20180520
  16. COTRIMOXAZOLE [Concomitant]
     Active Substance: SULFAMETHOXAZOLE\TRIMETHOPRIM
     Indication: Product used for unknown indication
     Dosage: 20 MG
     Route: 065
  17. CHOLECALCIFEROL [Concomitant]
     Active Substance: CHOLECALCIFEROL
     Indication: Product used for unknown indication
     Dosage: 20 MG
     Route: 048
  18. INSULIN GLARGINE [Concomitant]
     Active Substance: INSULIN GLARGINE
     Indication: Product used for unknown indication
     Dosage: 300 DF
     Route: 058
     Dates: start: 20180525, end: 20180830
  19. MEROPENEM [Concomitant]
     Active Substance: MEROPENEM
     Indication: Product used for unknown indication
     Dosage: UNK (UNK)
     Route: 065
  20. METAMIZOLE SODIUM [Concomitant]
     Active Substance: METAMIZOLE SODIUM
     Indication: Product used for unknown indication
     Dosage: UNK (UNK)
     Route: 065
  21. METHYLPREDNISOLONE [Concomitant]
     Active Substance: METHYLPREDNISOLONE
     Indication: Product used for unknown indication
     Dosage: UNK (UNK)
     Route: 065
  22. PIPERACILLIN SODIUM [Concomitant]
     Active Substance: PIPERACILLIN SODIUM
     Indication: Product used for unknown indication
     Dosage: UNK (UNK)
     Route: 065
  23. POTASSIUM CITRATE MONOHYDRATE [Concomitant]
     Indication: Product used for unknown indication
     Dosage: 1560 MG
     Route: 065
  24. PREDNISOLONE [Concomitant]
     Active Substance: PREDNISOLONE
     Indication: Product used for unknown indication
     Dosage: UNK
     Route: 065
  25. SODIUM [Concomitant]
     Active Substance: SODIUM
     Indication: Product used for unknown indication
     Dosage: UNK
     Route: 065
  26. SODIUM [Concomitant]
     Active Substance: SODIUM
     Dosage: UNK
     Route: 065
  27. TAZOBACTAM [Concomitant]
     Active Substance: TAZOBACTAM
     Indication: Product used for unknown indication
     Dosage: UNK (UNK)
     Route: 065
  28. SULFAMETHOXAZOLE\TRIMETHOPRIM [Concomitant]
     Active Substance: SULFAMETHOXAZOLE\TRIMETHOPRIM
     Indication: Product used for unknown indication
     Dosage: 160 MG
     Route: 065

REACTIONS (21)
  - Malignant neoplasm progression [Fatal]
  - Acute kidney injury [Recovered/Resolved]
  - Urosepsis [Recovered/Resolved]
  - Colitis [Recovered/Resolved]
  - Device related infection [Not Recovered/Not Resolved]
  - Metastases to meninges [Unknown]
  - Meningitis [Not Recovered/Not Resolved]
  - Dyspnoea [Unknown]
  - Pulmonary oedema [Unknown]
  - Tachycardia [Unknown]
  - Chest pain [Unknown]
  - Klebsiella infection [Not Recovered/Not Resolved]
  - Addison^s disease [Unknown]
  - Heparin-induced thrombocytopenia [Recovered/Resolved]
  - Adrenal insufficiency [Not Recovered/Not Resolved]
  - Hypertensive crisis [Unknown]
  - Blood pressure increased [Unknown]
  - Hyperglycaemia [Recovered/Resolved]
  - Adrenomegaly [Unknown]
  - Retinopathy [Not Recovered/Not Resolved]
  - Retinal detachment [Not Recovered/Not Resolved]

NARRATIVE: CASE EVENT DATE: 20180419
